FAERS Safety Report 4767858-8 (Version None)
Quarter: 2005Q3

REPORT INFORMATION
  Report Type: 
  Country: None (occurrence: None)
  Receive Date: 20050913
  Receipt Date: 20050825
  Transmission Date: 20060218
  Serious: No
  Sender: FDA-Public Use
  Company Number: PAR_0176_2005

PATIENT
  Age: 74 Year
  Sex: Male

DRUGS (5)
  1. HYDROXYUREA [Suspect]
     Indication: POLYCYTHAEMIA
     Dosage: 500 MG QDAY PO
     Route: 048
  2. COUMADIN [Concomitant]
  3. COZAAR [Concomitant]
  4. LASIX [Concomitant]
  5. VITAMIN E [Concomitant]

REACTIONS (2)
  - THROMBOSIS [None]
  - ULCER [None]
